FAERS Safety Report 5810916-7 (Version None)
Quarter: 2008Q3

REPORT INFORMATION
  Report Type: 
  Country: None (occurrence: None)
  Receive Date: 20080716
  Receipt Date: 20080704
  Transmission Date: 20090109
  Serious: Yes (Hospitalization)
  Sender: FDA-Public Use
  Company Number: PHHY2008JP08581

PATIENT
  Sex: Female

DRUGS (23)
  1. COMTAN [Suspect]
     Indication: PARKINSON'S DISEASE
     Dosage: 400 MG/DAY
     Route: 048
     Dates: start: 20080331, end: 20080414
  2. COMTAN [Suspect]
     Dosage: 400 MG DIVIDED INTO 4 DOSES
     Route: 048
     Dates: start: 20080612
  3. MENEST [Suspect]
     Dosage: 400 MG/DAY
     Route: 048
  4. SIFROL [Suspect]
     Dosage: 6 MG/DAY DIVIDED INTO 3 DOSES DAILY (05 MG X 2 TABS)
     Route: 048
  5. SYMMETREL [Concomitant]
     Dosage: 50 MG
     Route: 048
     Dates: start: 20070926
  6. SYMMETREL [Concomitant]
     Dosage: 300 MG/DAY
     Route: 048
  7. BLOPRESS [Concomitant]
     Dosage: UNK
     Route: 048
  8. BLOPRESS [Concomitant]
     Dosage: 16 MG/DAY
     Route: 048
  9. MAGLAX [Concomitant]
     Route: 048
  10. MAGLAX [Concomitant]
     Dosage: 500 MG/DAY
     Route: 048
  11. MARZULENE [Concomitant]
     Route: 048
  12. MARZULENE [Concomitant]
     Dosage: 3 DF/DAY
     Route: 048
  13. ALOSENN [Concomitant]
     Dosage: 3 DF, UNK
  14. TORSEMIDE [Concomitant]
     Route: 048
  15. TORSEMIDE [Concomitant]
     Dosage: 4 MG/DAY
     Route: 048
  16. LOXONIN [Concomitant]
     Route: 048
  17. LOXONIN [Concomitant]
     Dosage: 60 MG/DAY
     Route: 048
  18. LAXOBERON [Concomitant]
     Dosage: 70 ML, UNK
  19. TELEMINSOFT [Concomitant]
     Dosage: 20 DF, UNK
  20. WARFARIN POTASSIUM [Concomitant]
     Dosage: UNK
     Route: 048
     Dates: start: 20080616
  21. WARFARIN POTASSIUM [Concomitant]
     Dosage: 6 MG/DAY
     Route: 048
  22. SEROQUEL [Concomitant]
     Dosage: UNK
     Dates: start: 20080315
  23. CARBIDOPA AND LEVODOPA [Concomitant]
     Dosage: 4 TABS DIVIDED INTO 4 DOSES

REACTIONS (2)
  - HALLUCINATION [None]
  - OEDEMA PERIPHERAL [None]
